FAERS Safety Report 8420988-1 (Version None)
Quarter: 2012Q2

REPORT INFORMATION
  Report Type: 
  Country: None (occurrence: None)
  Receive Date: 20120531
  Receipt Date: 20120514
  Transmission Date: 20120825
  Serious: Yes (Death)
  Sender: FDA-Public Use
  Company Number: 2012DE0171

PATIENT
  Sex: Female

DRUGS (8)
  1. ANAKINRA (ANAKINRA) [Suspect]
     Indication: RHEUMATOID ARTHRITIS
     Dates: start: 20020501, end: 20030301
  2. METOTREXATE (METOTREXATE) [Concomitant]
  3. INFLIXIMAB (INFLIXIMAB) [Concomitant]
  4. ADALIMUMAB (ADALIMUMAB) [Concomitant]
  5. CHLOROQUINE PHOSPHATE [Concomitant]
  6. ETANERECEPT (ETANERECEPT) [Concomitant]
  7. RITUXIMAB (RITUXIMAB) [Concomitant]
  8. SULFASALAZINE [Concomitant]

REACTIONS (2)
  - PULMONARY OEDEMA [None]
  - METASTASES TO LUNG [None]
